FAERS Safety Report 9941010 (Version 1)
Quarter: 2014Q1

REPORT INFORMATION
  Report Type: Report from Study
  Country: US (occurrence: US)
  Receive Date: 20140303
  Receipt Date: 20140303
  Transmission Date: 20141002
  Serious: Yes (Hospitalization)
  Sender: FDA-Public Use
  Company Number: US-ABBVIE-13P-163-1042700-00

PATIENT
  Age: 58 Year
  Sex: Female
  Weight: 60.84 kg

DRUGS (1)
  1. HUMIRA PEN [Suspect]
     Indication: RHEUMATOID ARTHRITIS
     Dates: start: 2012

REACTIONS (3)
  - Fall [Recovered/Resolved]
  - Infection [Recovered/Resolved]
  - Joint injury [Recovered/Resolved]
